FAERS Safety Report 16874718 (Version 2)
Quarter: 2019Q4

REPORT INFORMATION
  Report Type: Spontaneous
  Country: US (occurrence: US)
  Receive Date: 20191001
  Receipt Date: 20191023
  Transmission Date: 20200122
  Serious: Yes (Hospitalization)
  Sender: FDA-Public Use
  Company Number: US-TEVA-2019-US-1115585

PATIENT
  Age: 67 Year
  Sex: Male

DRUGS (5)
  1. ALLOPURINOL. [Suspect]
     Active Substance: ALLOPURINOL
     Indication: GOUT
     Route: 065
  2. METOPROLOL. [Concomitant]
     Active Substance: METOPROLOL
     Route: 065
  3. ENALAPRIL [Concomitant]
     Active Substance: ENALAPRIL
     Route: 065
  4. SIMVASTATIN. [Concomitant]
     Active Substance: SIMVASTATIN
     Route: 065
  5. ASPIRIN. [Concomitant]
     Active Substance: ASPIRIN
     Route: 065

REACTIONS (7)
  - Drug hypersensitivity [Recovering/Resolving]
  - Peripheral swelling [Recovering/Resolving]
  - Body temperature increased [Recovering/Resolving]
  - Pain in extremity [Recovering/Resolving]
  - Skin lesion [Not Recovered/Not Resolved]
  - Rash maculo-papular [Recovering/Resolving]
  - Nausea [Recovering/Resolving]
